FAERS Safety Report 17556237 (Version 1)
Quarter: 2020Q1

REPORT INFORMATION
  Report Type: Spontaneous
  Country: US (occurrence: US)
  Receive Date: 20200318
  Receipt Date: 20200318
  Transmission Date: 20200409
  Serious: No
  Sender: FDA-Public Use
  Company Number: US-THERAPEUTICSMD-2020TMD01090

PATIENT
  Age: 66 Year
  Sex: Female
  Weight: 86.17 kg

DRUGS (4)
  1. ESTRADIOL; ESTROGEN; TESTOSTERONE COMPOUNDED CREAM [Concomitant]
  2. IMVEXXY [Suspect]
     Active Substance: ESTRADIOL
     Dosage: 10 ?G, TWICE WEEKLY, BEFORE BED
     Route: 067
     Dates: start: 202002
  3. IMVEXXY [Suspect]
     Active Substance: ESTRADIOL
     Indication: ATROPHIC VULVOVAGINITIS
     Dosage: 10 ?G, ONCE DAILY, BEFORE BED
     Route: 067
     Dates: start: 202002, end: 202002
  4. UNSPECIFIED MEDICATIONS [Concomitant]
     Active Substance: UNSPECIFIED INGREDIENT

REACTIONS (3)
  - Vulvovaginal pain [Not Recovered/Not Resolved]
  - Vulvovaginal discomfort [Not Recovered/Not Resolved]
  - Product use complaint [Not Recovered/Not Resolved]

NARRATIVE: CASE EVENT DATE: 202002
